FAERS Safety Report 7495887-2 (Version None)
Quarter: 2011Q2

REPORT INFORMATION
  Report Type: 
  Country: None (occurrence: None)
  Receive Date: 20110523
  Receipt Date: 20110511
  Transmission Date: 20111010
  Serious: Yes (Other)
  Sender: FDA-Public Use
  Company Number: US-CELGENEUS-163-21880-11040655

PATIENT
  Sex: Male
  Weight: 84.4 kg

DRUGS (2)
  1. REVLIMID [Suspect]
     Dosage: 10 MILLIGRAM
     Route: 048
     Dates: start: 20100608
  2. REVLIMID [Suspect]
     Indication: MULTIPLE MYELOMA
     Dosage: 15 MILLIGRAM
     Route: 048
     Dates: start: 20090521, end: 20100426

REACTIONS (4)
  - FATIGUE [None]
  - WHITE BLOOD CELL COUNT DECREASED [None]
  - OSTEONECROSIS OF JAW [None]
  - INFECTION [None]
